FAERS Safety Report 10153137 (Version 1)
Quarter: 2014Q2

REPORT INFORMATION
  Report Type: Report from Study
  Country: US (occurrence: US)
  Receive Date: 20140505
  Receipt Date: 20140505
  Transmission Date: 20141212
  Serious: No
  Sender: FDA-Public Use
  Company Number: US-GILEAD-2014-0101354

PATIENT
  Age: 67 Year
  Sex: Female

DRUGS (3)
  1. SOFOSBUVIR [Suspect]
     Indication: CHRONIC HEPATITIS C
     Dosage: 400 MG, BID
     Route: 048
     Dates: start: 20140419, end: 20140421
  2. SOFOSBUVIR [Suspect]
     Dosage: 400 MG, QD
     Route: 048
  3. RIBAVIRIN [Concomitant]

REACTIONS (1)
  - Overdose [Recovered/Resolved]
